FAERS Safety Report 23775600 (Version 1)
Quarter: 2024Q2

REPORT INFORMATION
  Report Type: Spontaneous
  Country: FR (occurrence: FR)
  Receive Date: 20240423
  Receipt Date: 20240423
  Transmission Date: 20240716
  Serious: Yes (Other)
  Sender: FDA-Public Use
  Company Number: FR-STRIDES ARCOLAB LIMITED-2024SP004613

PATIENT
  Age: 6 Decade

DRUGS (6)
  1. TETRACYCLINE [Suspect]
     Active Substance: TETRACYCLINE
     Indication: Helicobacter infection
     Dosage: UNK (RECEIVED REPEATED THREE MONTH COURSES OF TETRACYCLINE OVER THREE YEARS)
     Route: 065
  2. TETRACYCLINE [Suspect]
     Active Substance: TETRACYCLINE
     Indication: Acne
  3. Bismuth subcitrate potassium, metronidazole and tetracycline hydrochlo [Concomitant]
     Indication: Helicobacter infection
     Dosage: UNK
     Route: 065
  4. Bismuth subcitrate potassium, metronidazole and tetracycline hydrochlo [Concomitant]
     Indication: Gastritis
  5. OMEPRAZOLE [Concomitant]
     Active Substance: OMEPRAZOLE
     Indication: Helicobacter infection
     Dosage: UNK
     Route: 065
  6. OMEPRAZOLE [Concomitant]
     Active Substance: OMEPRAZOLE
     Indication: Gastritis

REACTIONS (2)
  - Drug resistance [Unknown]
  - Off label use [Unknown]
